FAERS Safety Report 8469560-8 (Version None)
Quarter: 2012Q2

REPORT INFORMATION
  Report Type: 
  Country: None (occurrence: None)
  Receive Date: 20120626
  Receipt Date: 20120615
  Transmission Date: 20120825
  Serious: No
  Sender: FDA-Public Use
  Company Number: US-ASTRAZENECA-2012SE40347

PATIENT
  Age: 52 Year
  Sex: Female
  Weight: 59 kg

DRUGS (1)
  1. SYMBICORT [Suspect]
     Indication: ASTHMA
     Dosage: TWO PUFFS BID
     Route: 055
     Dates: start: 20120309, end: 20120401

REACTIONS (3)
  - NERVOUSNESS [None]
  - PARANOIA [None]
  - MUSCLE SPASMS [None]
